FAERS Safety Report 4282417-1 (Version None)
Quarter: 2004Q1

REPORT INFORMATION
  Report Type: 
  Country: None (occurrence: None)
  Receive Date: 20040129
  Receipt Date: 20040120
  Transmission Date: 20041129
  Serious: Yes (Other)
  Sender: FDA-Public Use
  Company Number: HQWYE175018NOV03

PATIENT
  Age: 69 Year
  Sex: Female

DRUGS (9)
  1. AMIODARONE HCL [Suspect]
     Indication: ATRIAL FIBRILLATION
     Dosage: 200 MG 1X PER 1 DAY; 100 MG 1X PER 1 DAY
     Route: 048
     Dates: start: 20020701, end: 20031025
  2. AMIODARONE HCL [Suspect]
     Indication: ATRIAL FIBRILLATION
     Dosage: 200 MG 1X PER 1 DAY; 100 MG 1X PER 1 DAY
     Route: 048
     Dates: start: 20031026, end: 20031105
  3. CARVEDILOL [Concomitant]
  4. WARFARIN SODIUM [Concomitant]
  5. ZANTAC [Concomitant]
  6. ZOLPIDEM TARTRATE [Concomitant]
  7. LASIX [Concomitant]
  8. BAYASPIRINA (ACETYLSALICYLIC ACID) [Concomitant]
  9. DIOVAN [Concomitant]

REACTIONS (1)
  - INTERSTITIAL LUNG DISEASE [None]
